FAERS Safety Report 5302504-6 (Version None)
Quarter: 2007Q2

REPORT INFORMATION
  Report Type: 
  Country: None (occurrence: None)
  Receive Date: 20070419
  Receipt Date: 20070410
  Transmission Date: 20071010
  Serious: Yes (Hospitalization)
  Sender: FDA-Public Use
  Company Number: US-ELI_LILLY_AND_COMPANY-US200704002327

PATIENT
  Age: 61 Year
  Sex: Female
  Weight: 90.702 kg

DRUGS (5)
  1. BYETTA [Suspect]
     Indication: DIABETES MELLITUS NON-INSULIN-DEPENDENT
     Dosage: 5 UG, 2/D
     Route: 058
     Dates: start: 20060605, end: 20060701
  2. BYETTA [Suspect]
     Dosage: 10 UG, 2/D
     Route: 058
     Dates: start: 20060701
  3. LANTUS [Concomitant]
     Indication: DIABETES MELLITUS
     Dosage: 40 U, EACH EVENING
     Route: 058
  4. GLUCOPHAGE [Concomitant]
     Indication: DIABETES MELLITUS
     Dosage: 100 MG, 2/D
     Route: 048
  5. NOVOLOG [Concomitant]
     Indication: DIABETES MELLITUS
     Dosage: 5 U, 3/D
     Route: 058

REACTIONS (5)
  - BLOOD MAGNESIUM DECREASED [None]
  - DEHYDRATION [None]
  - DYSKINESIA [None]
  - IMPLANTABLE DEFIBRILLATOR MALFUNCTION [None]
  - WEIGHT DECREASED [None]
